FAERS Safety Report 4901950-X (Version None)
Quarter: 2006Q1

REPORT INFORMATION
  Report Type: 
  Country: None (occurrence: None)
  Receive Date: 20060206
  Receipt Date: 20060125
  Transmission Date: 20060701
  Serious: Yes (Other)
  Sender: FDA-Public Use
  Company Number: 2006AP00417

PATIENT
  Age: 9326 Day
  Sex: Female
  Weight: 60 kg

DRUGS (5)
  1. SEROQUEL [Suspect]
     Indication: PSYCHOTIC DISORDER
     Dosage: DAILY DOSE 150 MG TO 300 MG
     Route: 048
     Dates: start: 20050827, end: 20051224
  2. DEPAKENE [Concomitant]
     Indication: AFFECTIVE DISORDER
     Dosage: 500 MG - 1000 MG
     Route: 048
     Dates: start: 20000101
  3. AKINETON [Concomitant]
     Indication: EXTRAPYRAMIDAL DISORDER
     Dosage: 4MG TO 6MG DAILY
     Route: 048
     Dates: start: 20000101
  4. EURODIN [Concomitant]
     Indication: INSOMNIA
     Route: 048
     Dates: start: 20000101
  5. SENNOSIDE [Concomitant]
     Indication: CONSTIPATION
     Route: 048
     Dates: start: 20000101

REACTIONS (1)
  - PANCYTOPENIA [None]
